FAERS Safety Report 4937723-1 (Version None)
Quarter: 2006Q1

REPORT INFORMATION
  Report Type: 
  Country: None (occurrence: None)
  Receive Date: 20060309
  Receipt Date: 20060228
  Transmission Date: 20060701
  Serious: Yes (Hospitalization)
  Sender: FDA-Public Use
  Company Number: NSADSS2001002802

PATIENT
  Age: 57 Year
  Sex: Female

DRUGS (3)
  1. REMICADE [Suspect]
     Route: 041
     Dates: start: 20000420
  2. REMICADE [Suspect]
     Route: 041
     Dates: start: 20000420
  3. METHOTREXATE [Concomitant]
     Route: 065
     Dates: start: 20000410

REACTIONS (1)
  - RENAL CELL CARCINOMA STAGE UNSPECIFIED [None]
